FAERS Safety Report 22091515 (Version 1)
Quarter: 2023Q1

REPORT INFORMATION
  Report Type: Spontaneous
  Country: PL (occurrence: PL)
  Receive Date: 20230314
  Receipt Date: 20230314
  Transmission Date: 20230418
  Serious: Yes (Other)
  Sender: FDA-Public Use
  Company Number: PL-AMGEN-POLSP2023033384

PATIENT
  Age: 62 Year
  Sex: Male

DRUGS (16)
  1. IRINOTECAN [Suspect]
     Active Substance: IRINOTECAN
     Indication: Colorectal cancer metastatic
     Dosage: UNK
     Route: 065
     Dates: start: 2022
  2. AFLIBERCEPT [Suspect]
     Active Substance: AFLIBERCEPT
     Indication: Colorectal cancer metastatic
     Dosage: UNK
     Route: 065
     Dates: start: 2022
  3. FLUOROURACIL [Suspect]
     Active Substance: FLUOROURACIL
     Indication: Colorectal cancer metastatic
     Dosage: 2160 MILLIGRAM (2160 MILLIGRAM, 44 HOUR INFUSION)
     Route: 042
  4. FLUOROURACIL [Suspect]
     Active Substance: FLUOROURACIL
     Dosage: 720 MILLIGRAM (720 MILLIGRAM, BOLUS IV DAY 2,)
     Route: 042
  5. FLUOROURACIL [Suspect]
     Active Substance: FLUOROURACIL
     Dosage: 720 MILLIGRAM (720 MILLIGRAM/BOLUS IV DAY 1,)
     Route: 042
     Dates: start: 202007
  6. FLUOROURACIL [Suspect]
     Active Substance: FLUOROURACIL
     Dosage: UNK
     Route: 065
     Dates: start: 202010
  7. LEUCOVORIN [Suspect]
     Active Substance: LEUCOVORIN
     Indication: Colorectal cancer metastatic
     Dosage: 180 MILLIGRAM (120 MIN DAY 2)
     Route: 065
  8. LEUCOVORIN [Suspect]
     Active Substance: LEUCOVORIN
     Dosage: 180 MILLIGRAM (180 MILLIGRAM/INFUSION PER DAY, 120 MIN INFUSION IV DAY 1)
     Route: 065
     Dates: start: 202007
  9. LEUCOVORIN [Suspect]
     Active Substance: LEUCOVORIN
     Dosage: UNK (120 MIN DAY 2)
     Route: 065
     Dates: start: 202010
  10. OXALIPLATIN [Suspect]
     Active Substance: OXALIPLATIN
     Indication: Colorectal cancer metastatic
     Dosage: 153 MILLIGRAM (153 MILLIGRAM/120 MINUTES DAY 1)
     Route: 042
     Dates: start: 202007
  11. OXALIPLATIN [Suspect]
     Active Substance: OXALIPLATIN
     Dosage: UNK
     Route: 042
     Dates: start: 202010
  12. OXALIPLATIN [Suspect]
     Active Substance: OXALIPLATIN
     Dosage: 65 MILLIGRAM/SQ. METER
     Route: 042
     Dates: start: 202010
  13. VECTIBIX [Suspect]
     Active Substance: PANITUMUMAB
     Indication: Colorectal cancer metastatic
     Dosage: 450 MILLIGRAM (450 MILLIGRAM, Q2WK)
     Route: 042
     Dates: start: 202007
  14. VECTIBIX [Suspect]
     Active Substance: PANITUMUMAB
     Dosage: UNK UNK, ONCE A DAY (UNK UNK, QD)
     Route: 042
     Dates: start: 202010
  15. METOPROLOL [Concomitant]
     Active Substance: METOPROLOL
     Indication: Hypertension
     Dosage: 5 MILLIGRAM, ONCE A DAY (5 MILLIGRAM, EVERY DAY IN THE MORNING)
     Route: 065
  16. LEVOTHYROXINE SODIUM [Concomitant]
     Active Substance: LEVOTHYROXINE SODIUM
     Indication: Autoimmune hypothyroidism
     Dosage: UNK
     Route: 065

REACTIONS (5)
  - Colorectal cancer metastatic [Unknown]
  - Polyneuropathy [Unknown]
  - Proctectomy [Unknown]
  - Skin toxicity [Unknown]
  - Hepatic lesion [Unknown]

NARRATIVE: CASE EVENT DATE: 20220201
